FAERS Safety Report 8209095-0 (Version None)
Quarter: 2012Q1

REPORT INFORMATION
  Report Type: 
  Country: None (occurrence: None)
  Receive Date: 20120314
  Receipt Date: 20120305
  Transmission Date: 20120608
  Serious: Yes (Other)
  Sender: FDA-Public Use
  Company Number: BR-BRISTOL-MYERS SQUIBB COMPANY-16440273

PATIENT
  Sex: Female

DRUGS (1)
  1. IRBESARTAN [Suspect]
     Dosage: MORE THAN 2 YEARS AGO

REACTIONS (2)
  - FALL [None]
  - LOWER LIMB FRACTURE [None]
